FAERS Safety Report 8175919-9 (Version None)
Quarter: 2012Q1

REPORT INFORMATION
  Report Type: 
  Country: None (occurrence: None)
  Receive Date: 20120301
  Receipt Date: 20120227
  Transmission Date: 20120608
  Serious: Yes (Other)
  Sender: FDA-Public Use
  Company Number: US-PFIZER INC-2012033682

PATIENT
  Sex: Female
  Weight: 90.7 kg

DRUGS (7)
  1. ACETYLSALICYLIC ACID [Concomitant]
     Indication: CARDIOVASCULAR DISORDER
     Dosage: 81 MG, 1X/DAY
  2. CALCIUM [Concomitant]
     Indication: OSTEOPOROSIS
     Dosage: 600 MG, 1X/DAY
  3. NEURONTIN [Suspect]
     Indication: BIPOLAR DISORDER
     Dosage: 600 MG, 4X/DAY
     Route: 048
     Dates: start: 20120208, end: 20120213
  4. SYNTHROID [Concomitant]
     Indication: THYROID DISORDER
  5. NEURONTIN [Suspect]
     Indication: DEPRESSION
     Dosage: 1200 MG, 2X/DAY
     Route: 048
     Dates: start: 20050101
  6. GABAPENTIN [Suspect]
     Indication: DEPRESSION
     Dosage: TWO TIMES A DAY
     Route: 048
  7. SYNTHROID [Concomitant]
     Indication: THYROIDECTOMY
     Dosage: 0.175 MG, 1X/DAY

REACTIONS (3)
  - DRUG INEFFECTIVE [None]
  - DEPRESSION [None]
  - DRUG DOSE OMISSION [None]
